FAERS Safety Report 9688795 (Version 1)
Quarter: 2013Q4

REPORT INFORMATION
  Report Type: Spontaneous
  Country: GB (occurrence: GB)
  Receive Date: 20131114
  Receipt Date: 20131114
  Transmission Date: 20140711
  Serious: Yes (Life-Threatening, Hospitalization)
  Sender: FDA-Public Use
  Company Number: GB-PFIZER INC-2013320280

PATIENT
  Age: 88 Year
  Sex: Male

DRUGS (12)
  1. FLUCONAZOLE [Suspect]
     Dosage: 50 MG, 1X/DAY
     Route: 048
     Dates: start: 20130830, end: 20130904
  2. BENDROFLUMETHIAZIDE [Suspect]
     Dosage: 2.5 MG, 1X/DAY
     Route: 048
     Dates: end: 20130904
  3. NYSTATIN [Concomitant]
     Dosage: 100000 IU, UNK
     Route: 048
     Dates: start: 20130829
  4. TAMSULOSIN [Concomitant]
     Dosage: LONG-TERM
     Route: 048
  5. CETIRIZINE [Concomitant]
     Dosage: 10 MG, 1X/DAY
     Route: 048
     Dates: end: 20130904
  6. TIOTROPIUM [Concomitant]
     Dosage: 18 UG, 1X/DAY., LONG TERM
     Route: 050
  7. ALLOPURINOL [Concomitant]
     Dosage: 300 MG, 1X/DAY
     Route: 048
  8. SIMVASTATIN [Concomitant]
     Dosage: 40 MG, 1X/DAY
     Route: 048
     Dates: end: 20130904
  9. METFORMIN [Concomitant]
     Dosage: 500 MG, 1X/DAY
     Route: 048
     Dates: end: 20130904
  10. SALMETEROL XINAFOATE/FLUTICASONE PROPIONATE [Concomitant]
     Dosage: UNK
     Route: 050
  11. MOVICOL [Concomitant]
     Dosage: 13.7 G, UNK
     Route: 048
  12. OTOMIZE [Concomitant]
     Dosage: UNK
     Route: 048
     Dates: start: 20130820

REACTIONS (4)
  - Hyponatraemia [Recovered/Resolved]
  - Delirium [Unknown]
  - Renal impairment [Unknown]
  - Malaise [Unknown]
